FAERS Safety Report 10187025 (Version 2)
Quarter: 2014Q2

REPORT INFORMATION
  Report Type: Spontaneous
  Country: JP (occurrence: JP)
  Receive Date: 20140522
  Receipt Date: 20140604
  Transmission Date: 20141212
  Serious: Yes (Hospitalization, Other)
  Sender: FDA-Public Use
  Company Number: JP-JNJFOC-20140506160

PATIENT
  Age: 64 Year
  Sex: Female

DRUGS (8)
  1. XEPLION [Suspect]
     Indication: SCHIZOPHRENIA
     Dosage: 4 TH CYCLE
     Route: 030
     Dates: start: 20140417, end: 20140417
  2. XEPLION [Suspect]
     Indication: SCHIZOPHRENIA
     Dosage: 3 RD CYCLE
     Route: 030
     Dates: start: 20140320, end: 20140320
  3. XEPLION [Suspect]
     Indication: SCHIZOPHRENIA
     Dosage: 2 ND CYCLE
     Route: 030
     Dates: start: 20140220, end: 20140220
  4. XEPLION [Suspect]
     Indication: SCHIZOPHRENIA
     Dosage: 1 ST CYCLE
     Route: 030
     Dates: start: 20140123, end: 20140123
  5. ABILIFY [Suspect]
     Indication: SCHIZOPHRENIA
     Route: 048
     Dates: end: 20140428
  6. ADALAT CR [Concomitant]
     Indication: HYPERTENSION
     Route: 048
  7. ALLEGRA [Concomitant]
     Route: 048
  8. MEILAX [Concomitant]
     Route: 048

REACTIONS (2)
  - Myocardial infarction [Not Recovered/Not Resolved]
  - Thyroid cancer [Unknown]
